FAERS Safety Report 9338498 (Version 1)
Quarter: 2013Q2

REPORT INFORMATION
  Report Type: Spontaneous
  Country: FR (occurrence: FR)
  Receive Date: 20130610
  Receipt Date: 20130610
  Transmission Date: 20140414
  Serious: Yes (Other)
  Sender: FDA-Public Use
  Company Number: FR-JNJFOC-20130522065

PATIENT
  Age: 43 Year
  Sex: Male
  Weight: 74 kg

DRUGS (3)
  1. PREZISTA [Suspect]
     Indication: HIV TEST POSITIVE
     Route: 048
     Dates: end: 20130302
  2. KIVEXA [Suspect]
     Indication: HIV TEST POSITIVE
     Route: 048
     Dates: end: 20120302
  3. NORVIR [Suspect]
     Indication: HIV TEST POSITIVE
     Route: 048
     Dates: end: 20130302

REACTIONS (3)
  - Blood pressure increased [Recovering/Resolving]
  - Hypercholesterolaemia [Recovering/Resolving]
  - Hyperlipidaemia [Recovering/Resolving]
